FAERS Safety Report 5056698-0 (Version None)
Quarter: 2006Q2

REPORT INFORMATION
  Report Type: 
  Country: None (occurrence: None)
  Receive Date: 20060616
  Receipt Date: 20060420
  Transmission Date: 20061013
  Serious: No
  Sender: FDA-Public Use
  Company Number: 2006US000707

PATIENT
  Age: 36 Year
  Sex: Female

DRUGS (3)
  1. VESICARE [Suspect]
     Indication: HYPERTONIC BLADDER
     Dosage: 0.5, UID/QD, ORAL
     Route: 048
     Dates: start: 20060305
  2. HALOPIDOL (HALOPERIDOL) [Concomitant]
  3. SKIN CARE NIGHT CREAM WITH CITRUS [Concomitant]

REACTIONS (2)
  - DRY SKIN [None]
  - RASH ERYTHEMATOUS [None]
